FAERS Safety Report 9694812 (Version 1)
Quarter: 2013Q4

REPORT INFORMATION
  Report Type: Spontaneous
  Country: US (occurrence: US)
  Receive Date: 20131119
  Receipt Date: 20131119
  Transmission Date: 20140711
  Serious: No
  Sender: FDA-Public Use
  Company Number: US-ASTRAZENECA-2013SE82533

PATIENT
  Age: 4 Year
  Sex: Male

DRUGS (2)
  1. PULMICORT RESPULES [Suspect]
     Indication: OESOPHAGITIS
     Dosage: UNKNOWN BID
     Route: 055
     Dates: end: 2013
  2. PULMICORT RESPULES [Suspect]
     Indication: OESOPHAGITIS
     Dosage: UNKNOWN BID
     Route: 055

REACTIONS (4)
  - Dysphagia [Not Recovered/Not Resolved]
  - Wrong technique in drug usage process [Not Recovered/Not Resolved]
  - Drug dose omission [Not Recovered/Not Resolved]
  - Off label use [Not Recovered/Not Resolved]
